FAERS Safety Report 15000641 (Version 1)
Quarter: 2018Q2

REPORT INFORMATION
  Report Type: Spontaneous
  Country: US (occurrence: US)
  Receive Date: 20180523
  Receipt Date: 20180523
  Transmission Date: 20180711
  Serious: No
  Sender: FDA-Public Use
  Company Number: None

PATIENT
  Age: 61 Year
  Sex: Female
  Weight: 78.75 kg

DRUGS (4)
  1. DEPO-MEDROL [Suspect]
     Active Substance: METHYLPREDNISOLONE ACETATE
     Indication: SACROILIITIS
     Dosage: ?          OTHER ROUTE:BILATERAL S-I JOINT INJECTION?
  2. CELEXA [Concomitant]
     Active Substance: CITALOPRAM HYDROBROMIDE
  3. ATIVAN [Concomitant]
     Active Substance: LORAZEPAM
  4. LATANOPROST. [Concomitant]
     Active Substance: LATANOPROST

REACTIONS (5)
  - Tremor [None]
  - Feeling abnormal [None]
  - Panic attack [None]
  - Dizziness [None]
  - Feeling cold [None]

NARRATIVE: CASE EVENT DATE: 20180331
